FAERS Safety Report 11393784 (Version 1)
Quarter: 2015Q3

REPORT INFORMATION
  Report Type: Report from Study
  Country: CA (occurrence: CA)
  Receive Date: 20150819
  Receipt Date: 20150819
  Transmission Date: 20151125
  Serious: Yes (Hospitalization)
  Sender: FDA-Public Use
  Company Number: CA-AMGEN-CANSL2015084218

PATIENT
  Age: 56 Year
  Sex: Female

DRUGS (2)
  1. ASAPHEN [Concomitant]
     Active Substance: ASPIRIN
     Dosage: UNK
  2. NEUPOGEN [Suspect]
     Active Substance: FILGRASTIM
     Indication: NEUTROPENIA
     Dosage: 1ML/300MCG, UNK
     Route: 065
     Dates: start: 20150808

REACTIONS (2)
  - Rash [Unknown]
  - Infection [Unknown]
